FAERS Safety Report 25621724 (Version 1)
Quarter: 2025Q3

REPORT INFORMATION
  Report Type: Spontaneous
  Country: MY (occurrence: MY)
  Receive Date: 20250730
  Receipt Date: 20250730
  Transmission Date: 20251020
  Serious: Yes (Other)
  Sender: RANBAXY
  Company Number: MY-SUN PHARMACEUTICAL INDUSTRIES LTD-2025R1-519195

PATIENT
  Age: 23 Year
  Sex: Female

DRUGS (1)
  1. DICLOFENAC SODIUM [Suspect]
     Active Substance: DICLOFENAC SODIUM
     Indication: Dysmenorrhoea
     Dosage: 50 MILLIGRAM, TID
     Route: 048

REACTIONS (1)
  - Anaphylactic reaction [Recovered/Resolved]
